FAERS Safety Report 7124394-1 (Version None)
Quarter: 2010Q4

REPORT INFORMATION
  Report Type: 
  Country: None (occurrence: None)
  Receive Date: 20101126
  Receipt Date: 20101112
  Transmission Date: 20110411
  Serious: Yes (Hospitalization)
  Sender: FDA-Public Use
  Company Number: GXKR2010US12810

PATIENT
  Age: 30 Year
  Sex: Female

DRUGS (6)
  1. CARISOPRODOL (NGX) [Suspect]
     Dosage: 60 DF, ONCE/SINGLE
  2. PHENOBARBITAL TAB [Suspect]
     Route: 065
  3. CLONAZEPAM [Concomitant]
  4. METHADONE [Concomitant]
  5. PROMETHAZINE [Concomitant]
  6. QUETIAPINE [Concomitant]

REACTIONS (8)
  - ENDOTRACHEAL INTUBATION [None]
  - EYE MOVEMENT DISORDER [None]
  - GRAND MAL CONVULSION [None]
  - HYPOXIA [None]
  - OVERDOSE [None]
  - TACHYCARDIA [None]
  - TACHYPNOEA [None]
  - UNRESPONSIVE TO STIMULI [None]
